FAERS Safety Report 24344322 (Version 1)
Quarter: 2024Q3

REPORT INFORMATION
  Report Type: Spontaneous
  Country: JP (occurrence: JP)
  Receive Date: 20240920
  Receipt Date: 20240920
  Transmission Date: 20241017
  Serious: Yes (Death, Other)
  Sender: GALDERMA
  Company Number: JP-GALDERMA-JP2024005894

PATIENT

DRUGS (5)
  1. NEMOLIZUMAB [Suspect]
     Active Substance: NEMOLIZUMAB
     Indication: Dermatitis atopic
     Dosage: 60 MILLIGRAM/4 WEEKS
     Route: 058
     Dates: start: 20240214, end: 20240214
  2. NEMOLIZUMAB [Suspect]
     Active Substance: NEMOLIZUMAB
     Dosage: 60 MILLIGRAM/4 WEEKS
     Route: 058
     Dates: start: 20240313, end: 20240313
  3. NEMOLIZUMAB [Suspect]
     Active Substance: NEMOLIZUMAB
     Dosage: 60 MILLIGRAM/4 WEEKS
     Route: 058
     Dates: start: 2024, end: 2024
  4. NEMOLIZUMAB [Suspect]
     Active Substance: NEMOLIZUMAB
     Dosage: 60 MILLIGRAM/4 WEEKS
     Route: 058
     Dates: start: 20240508, end: 20240508
  5. VONOPRAZAN FUMARATE [Concomitant]
     Active Substance: VONOPRAZAN FUMARATE
     Indication: Eosinophilic oesophagitis
     Dosage: UNK
     Route: 048

REACTIONS (3)
  - Myocardial infarction [Fatal]
  - Face oedema [Recovered/Resolved]
  - Oedema peripheral [Recovered/Resolved]

NARRATIVE: CASE EVENT DATE: 20240101
